FAERS Safety Report 24110602 (Version 1)
Quarter: 2024Q3

REPORT INFORMATION
  Report Type: Spontaneous
  Country: CN (occurrence: CN)
  Receive Date: 20240718
  Receipt Date: 20240718
  Transmission Date: 20241017
  Serious: Yes (Hospitalization, Other)
  Sender: BAXTER
  Company Number: None

PATIENT
  Age: 52 Year
  Sex: Female
  Weight: 65 kg

DRUGS (15)
  1. CYCLOPHOSPHAMIDE [Suspect]
     Active Substance: CYCLOPHOSPHAMIDE
     Indication: B-cell lymphoma
     Dosage: 1200 MG, ONE TIME IN ONE DAY, ST, DILUTED WITH 100 ML OF 0.9% SODIUM CHLORIDE, SECOND CYCLE OF CHEMO
     Route: 041
     Dates: start: 20240611, end: 20240611
  2. CYCLOPHOSPHAMIDE [Suspect]
     Active Substance: CYCLOPHOSPHAMIDE
     Indication: Chemotherapy
  3. CYCLOPHOSPHAMIDE [Suspect]
     Active Substance: CYCLOPHOSPHAMIDE
     Indication: Neoplasm
  4. SODIUM CHLORIDE [Suspect]
     Active Substance: SODIUM CHLORIDE
     Indication: Medication dilution
     Dosage: (0.9%) 100 ML, ONE TIME IN ONE DAY, ST, DOSAGE FORM: INJECTION, USED TO DILUTE 1200 MG OF CYCLOPHOSP
     Route: 041
     Dates: start: 20240611, end: 20240611
  5. SODIUM CHLORIDE [Suspect]
     Active Substance: SODIUM CHLORIDE
     Dosage: (0.9%) 20 ML, ONE TIME IN ONE DAY, ST, DOSAGE FORM: INJECTION, USED TO DILUTE 2 MG OF VINCRISTINE SU
     Route: 041
     Dates: start: 20240611, end: 20240611
  6. DEXTROSE [Suspect]
     Active Substance: DEXTROSE\DEXTROSE MONOHYDRATE
     Indication: Medication dilution
     Dosage: (5%) 100 ML, ONE TIME IN ONE DAY, ST, DOSAGE FORM: INJECTION, USED TO DILUTE 50 MG OF PIRARUBICIN HY
     Route: 041
     Dates: start: 20240611, end: 20240611
  7. PIRARUBICIN HYDROCHLORIDE [Suspect]
     Active Substance: PIRARUBICIN HYDROCHLORIDE
     Indication: B-cell lymphoma
     Dosage: 50 MG, ONE TIME IN ONE DAY, ST, DILUTED WITH 100 ML OF 5% GLUCOSE, SECOND CYCLE OF CHEMOTHERAPY
     Route: 041
     Dates: start: 20240611, end: 20240611
  8. PIRARUBICIN HYDROCHLORIDE [Suspect]
     Active Substance: PIRARUBICIN HYDROCHLORIDE
     Indication: Chemotherapy
  9. PIRARUBICIN HYDROCHLORIDE [Suspect]
     Active Substance: PIRARUBICIN HYDROCHLORIDE
     Indication: Neoplasm
  10. VINCRISTINE SULFATE [Suspect]
     Active Substance: VINCRISTINE SULFATE
     Indication: B-cell lymphoma
     Dosage: 2 MG, ONE TIME IN ONE DAY, ST, DILUTED WITH 20 ML OF 0.9% SODIUM CHLORIDE, SECOND CYCLE OF CHEMOTHER
     Route: 041
     Dates: start: 20240611, end: 20240611
  11. VINCRISTINE SULFATE [Suspect]
     Active Substance: VINCRISTINE SULFATE
     Indication: Chemotherapy
  12. VINCRISTINE SULFATE [Suspect]
     Active Substance: VINCRISTINE SULFATE
     Indication: Neoplasm
  13. PREDNISONE ACETATE [Suspect]
     Active Substance: PREDNISONE ACETATE
     Indication: B-cell lymphoma
     Dosage: 100 MG, QD, SECOND CYCLE OF CHEMOTHERAPY
     Route: 048
     Dates: start: 20240611, end: 20240615
  14. PREDNISONE ACETATE [Suspect]
     Active Substance: PREDNISONE ACETATE
     Indication: Chemotherapy
  15. PREDNISONE ACETATE [Suspect]
     Active Substance: PREDNISONE ACETATE
     Indication: Neoplasm

REACTIONS (1)
  - Myelosuppression [Recovered/Resolved]

NARRATIVE: CASE EVENT DATE: 20240630
